FAERS Safety Report 4469433-1 (Version None)
Quarter: 2004Q4

REPORT INFORMATION
  Report Type: 
  Country: None (occurrence: None)
  Receive Date: 20041005
  Receipt Date: 20041005
  Transmission Date: 20050328
  Serious: Yes (Hospitalization)
  Sender: FDA-Public Use
  Company Number: None

PATIENT
  Age: 9 Year
  Sex: Male
  Weight: 30.8446 kg

DRUGS (1)
  1. ABILIFY [Suspect]
     Indication: HALLUCINATION, AUDITORY
     Dates: start: 20040916, end: 20040916

REACTIONS (4)
  - DYSTONIA [None]
  - OBSTRUCTIVE AIRWAYS DISORDER [None]
  - OESOPHAGEAL SPASM [None]
  - RESPIRATION ABNORMAL [None]
